FAERS Safety Report 4465049-1 (Version None)
Quarter: 2004Q4

REPORT INFORMATION
  Report Type: 
  Country: None (occurrence: None)
  Receive Date: 20041004
  Receipt Date: 20040924
  Transmission Date: 20050328
  Serious: Yes (Hospitalization)
  Sender: FDA-Public Use
  Company Number: PHBS2004US12809

PATIENT
  Age: 56 Year
  Sex: Male

DRUGS (3)
  1. METOPROLOL [Suspect]
     Indication: HYPERTENSION
     Dosage: 75 MG, BID
  2. BUPROPION HCL [Suspect]
     Dosage: 150 MG, BID
  3. DILTIAZEM [Concomitant]
     Dosage: 240 MG, BID

REACTIONS (11)
  - BLOOD PRESSURE DECREASED [None]
  - CARDIAC FAILURE CONGESTIVE [None]
  - DRUG INTERACTION [None]
  - DYSPNOEA [None]
  - FATIGUE [None]
  - HEART RATE DECREASED [None]
  - PITTING OEDEMA [None]
  - PULMONARY HILUM MASS [None]
  - PULMONARY VASCULAR DISORDER [None]
  - RESPIRATORY RATE INCREASED [None]
  - SINUS BRADYCARDIA [None]
